FAERS Safety Report 15206485 (Version 32)
Quarter: 2021Q2

REPORT INFORMATION
  Report Type: Spontaneous
  Country: CA (occurrence: CA)
  Receive Date: 20180727
  Receipt Date: 20210512
  Transmission Date: 20210716
  Serious: Yes (Other)
  Sender: FDA-Public Use
  Company Number: CA-CELLTRION INC.-2017CA006277

PATIENT

DRUGS (37)
  1. INFLECTRA [Suspect]
     Active Substance: INFLIXIMAB-DYYB
     Dosage: 600 MG, EVERY 8 WEEKS
     Route: 042
     Dates: start: 20180525
  2. INFLECTRA [Suspect]
     Active Substance: INFLIXIMAB-DYYB
     Dosage: 800 MG, (EVERY 8 WEEKS)
     Route: 042
     Dates: start: 20190909
  3. INFLECTRA [Suspect]
     Active Substance: INFLIXIMAB-DYYB
     Dosage: 800 MG AT 0,2,6 WEEKS,THEN EVERY 4 WEEKS(RE?INDUCTION)/800 MG EVERY 8 WEEK
     Route: 042
     Dates: start: 20200416
  4. INFLECTRA [Suspect]
     Active Substance: INFLIXIMAB-DYYB
     Dosage: 800 MG AT 0,2,6 WEEKS,THEN EVERY 4 WEEKS(RE?INDUCTION)
     Route: 042
     Dates: start: 20201221
  5. PREDNISONE. [Concomitant]
     Active Substance: PREDNISONE
     Dosage: 10 MG, ONCE DAILY
  6. INFLECTRA [Suspect]
     Active Substance: INFLIXIMAB-DYYB
     Dosage: 400 MG EVERY 8 WEEK
     Route: 042
     Dates: start: 20170915, end: 20180104
  7. INFLECTRA [Suspect]
     Active Substance: INFLIXIMAB-DYYB
     Dosage: 800 MG AT 0,2,6 WEEKS,THEN EVERY 4 WEEKS(RE?INDUCTION)/WEEK 2 DOSE
     Route: 042
     Dates: start: 20200205, end: 20200205
  8. INFLECTRA [Suspect]
     Active Substance: INFLIXIMAB-DYYB
     Dosage: 800 MG AT 0,2,6 WEEKS,THEN EVERY 4 WEEKS(RE?INDUCTION)/WEEK 6 DOSE (RE?INDUCTION)
     Route: 042
     Dates: start: 20200309, end: 20200309
  9. INFLECTRA [Suspect]
     Active Substance: INFLIXIMAB-DYYB
     Dosage: 800 MG AT 0,2,6 WEEKS,THEN EVERY 4 WEEKS(RE?INDUCTION)
     Route: 042
     Dates: start: 20200309
  10. EPIPEN [Concomitant]
     Active Substance: EPINEPHRINE
     Indication: FOOD ALLERGY
     Dosage: 1 DF, AS NEEDED
     Route: 065
  11. INFLECTRA [Suspect]
     Active Substance: INFLIXIMAB-DYYB
     Dosage: 600 MG, EVERY 8 WEEKS
     Route: 042
     Dates: start: 20180327, end: 20180717
  12. INFLECTRA [Suspect]
     Active Substance: INFLIXIMAB-DYYB
     Dosage: 600 MG, SCHEDULED AT 0, 2, 6 WEEKS, THEN EVERY 8 WEEKS (RE?INDUCTION)/WEEK 0 DOSE (RE?INDUCTION)
     Route: 042
     Dates: start: 20181127, end: 20181127
  13. INFLECTRA [Suspect]
     Active Substance: INFLIXIMAB-DYYB
     Dosage: 800MG EVERY 8WEEKS
     Route: 042
     Dates: start: 20200514, end: 20210331
  14. INFLECTRA [Suspect]
     Active Substance: INFLIXIMAB-DYYB
     Dosage: 800 MG AT 0,2,6 WEEKS,THEN EVERY 4 WEEKS(RE?INDUCTION)
     Route: 042
     Dates: start: 20200730
  15. INFLECTRA [Suspect]
     Active Substance: INFLIXIMAB-DYYB
     Dosage: 800 MG EVERY 8 WEEK
     Route: 042
     Dates: start: 20210331
  16. CONCERTA [Concomitant]
     Active Substance: METHYLPHENIDATE HYDROCHLORIDE
     Dosage: 36 MG, 1X/DAY
     Route: 048
     Dates: start: 201906
  17. INFLECTRA [Suspect]
     Active Substance: INFLIXIMAB-DYYB
     Dosage: 400 MG WEEK 6 DOSE
     Route: 042
     Dates: start: 20170713, end: 20170713
  18. INFLECTRA [Suspect]
     Active Substance: INFLIXIMAB-DYYB
     Dosage: 800 MG, (EVERY 8 WEEKS)
     Route: 042
     Dates: start: 20191205
  19. INFLECTRA [Suspect]
     Active Substance: INFLIXIMAB-DYYB
     Dosage: 400 MG WEEK 2 DOSE
     Route: 042
     Dates: start: 20170615, end: 20170615
  20. INFLECTRA [Suspect]
     Active Substance: INFLIXIMAB-DYYB
     Dosage: 600 MG, SCHEDULED AT 0, 2, 6 WEEKS, THEN EVERY 8 WEEKS (RE?INDUCTION)/WEEK 6 DOSE (RE?INDUCTION)
     Route: 042
     Dates: start: 20190312, end: 20190312
  21. INFLECTRA [Suspect]
     Active Substance: INFLIXIMAB-DYYB
     Dosage: 800 MG AT 0,2,6 WEEKS,THEN EVERY 4 WEEKS(RE?INDUCTION)
     Route: 042
     Dates: start: 20200416
  22. INFLECTRA [Suspect]
     Active Substance: INFLIXIMAB-DYYB
     Dosage: 800 MG AT 0,2,6 WEEKS,THEN EVERY 4 WEEKS(RE?INDUCTION)
     Route: 042
     Dates: start: 20200903
  23. INFLECTRA [Suspect]
     Active Substance: INFLIXIMAB-DYYB
     Dosage: 400 MG, SCHEDULED FOR 0, 2, 6, THEN EVERY 8 WEEKS
     Route: 042
     Dates: end: 20180104
  24. INFLECTRA [Suspect]
     Active Substance: INFLIXIMAB-DYYB
     Dosage: 800 MG AT 0,2,6 WEEKS,THEN EVERY 4 WEEKS(RE?INDUCTION)/WEEK 0 DOSE (RE?INDUCTION)
     Route: 042
     Dates: start: 20200123, end: 20200123
  25. INFLECTRA [Suspect]
     Active Substance: INFLIXIMAB-DYYB
     Dosage: 800 MG EVERY 8 WEEK
     Route: 042
     Dates: start: 20210203
  26. CITALOPRAM [Concomitant]
     Active Substance: CITALOPRAM HYDROBROMIDE
     Dosage: 1 DF
     Route: 048
  27. INFLECTRA [Suspect]
     Active Substance: INFLIXIMAB-DYYB
     Dosage: 400 MG WEEK 0 DOSE
     Route: 042
     Dates: start: 20170531, end: 20170531
  28. INFLECTRA [Suspect]
     Active Substance: INFLIXIMAB-DYYB
     Dosage: 600 MG, SCHEDULED AT 0, 2, 6 WEEKS, THEN EVERY 8 WEEKS (RE?INDUCTION)/WEEK 2 DOSE (RE?INDUCTION)
     Route: 042
     Dates: start: 20190115, end: 20190115
  29. INFLECTRA [Suspect]
     Active Substance: INFLIXIMAB-DYYB
     Dosage: 800 MG AT 0,2,6 WEEKS,THEN EVERY 4 WEEKS(RE?INDUCTION)
     Route: 042
     Dates: start: 20200123
  30. INFLECTRA [Suspect]
     Active Substance: INFLIXIMAB-DYYB
     Dosage: 800 MG AT 0,2,6 WEEKS,THEN EVERY 4 WEEKS(RE?INDUCTION)
     Route: 042
     Dates: start: 20200603
  31. INFLECTRA [Suspect]
     Active Substance: INFLIXIMAB-DYYB
     Dosage: 800 MG AT 0,2,6 WEEKS,THEN EVERY 4 WEEKS(RE?INDUCTION)
     Route: 042
     Dates: start: 20201013
  32. INFLECTRA [Suspect]
     Active Substance: INFLIXIMAB-DYYB
     Indication: CROHN^S DISEASE
     Dosage: 400 MG, SCHEDULED FOR 0, 2, 6, THEN EVERY 8 WEEKS
     Route: 042
     Dates: start: 20170531, end: 20180104
  33. INFLECTRA [Suspect]
     Active Substance: INFLIXIMAB-DYYB
     Dosage: 600 MG, EVERY 8 WEEKS
     Route: 042
     Dates: start: 20180717
  34. INFLECTRA [Suspect]
     Active Substance: INFLIXIMAB-DYYB
     Dosage: 600 MG, SCHEDULED AT 0, 2, 6 WEEKS, THEN EVERY 8 WEEKS (RE?INDUCTION)/ 600 MG EVER 8 WEEK
     Route: 042
     Dates: start: 20190524, end: 20190524
  35. INFLECTRA [Suspect]
     Active Substance: INFLIXIMAB-DYYB
     Dosage: 800 MG, (EVERY 8 WEEKS)
     Route: 042
     Dates: start: 20190715, end: 20191205
  36. INFLECTRA [Suspect]
     Active Substance: INFLIXIMAB-DYYB
     Dosage: 800 MG AT 0,2,6 WEEKS,THEN EVERY 4 WEEKS(RE?INDUCTION)
     Route: 042
     Dates: start: 20200123
  37. INFLECTRA [Suspect]
     Active Substance: INFLIXIMAB-DYYB
     Dosage: 800 MG AT 0,2,6 WEEKS,THEN EVERY 4 WEEKS(RE?INDUCTION)
     Route: 042
     Dates: start: 20200514

REACTIONS (34)
  - Pulmonary congestion [Unknown]
  - Dehydration [Unknown]
  - Seasonal allergy [Not Recovered/Not Resolved]
  - Abscess oral [Unknown]
  - Human bite [Recovering/Resolving]
  - Hypoaesthesia [Unknown]
  - Scab [Unknown]
  - Skin infection [Not Recovered/Not Resolved]
  - Off label use [Unknown]
  - Eye pruritus [Not Recovered/Not Resolved]
  - Drug ineffective [Unknown]
  - Inappropriate schedule of product administration [Unknown]
  - Impaired healing [Unknown]
  - Nasal congestion [Not Recovered/Not Resolved]
  - Rhinitis [Unknown]
  - Sinusitis [Unknown]
  - Infection susceptibility increased [Unknown]
  - Bloody discharge [Unknown]
  - Nasal discharge discolouration [Not Recovered/Not Resolved]
  - Tooth loss [Not Recovered/Not Resolved]
  - Weight decreased [Unknown]
  - Off label use [Unknown]
  - Cough [Recovered/Resolved]
  - Nasal dryness [Unknown]
  - Off label use [Unknown]
  - Product dose omission issue [Unknown]
  - Intentional product use issue [Unknown]
  - Asthenia [Unknown]
  - Blood pressure decreased [Unknown]
  - Condition aggravated [Unknown]
  - Fatigue [Not Recovered/Not Resolved]
  - Increased bronchial secretion [Unknown]
  - Drug level below therapeutic [Unknown]
  - Toothache [Unknown]

NARRATIVE: CASE EVENT DATE: 2017
